FAERS Safety Report 13844529 (Version 2)
Quarter: 2017Q3

REPORT INFORMATION
  Report Type: Spontaneous
  Country: US (occurrence: US)
  Receive Date: 20170808
  Receipt Date: 20170906
  Transmission Date: 20171127
  Serious: No
  Sender: FDA-Public Use
  Company Number: US-BIOMARINAP-US-2017-114964

PATIENT
  Age: 5 Year
  Sex: Female

DRUGS (1)
  1. ALDURAZYME [Suspect]
     Active Substance: LARONIDASE
     Indication: MUCOPOLYSACCHARIDOSIS
     Dosage: 0.58 MG/KG, QW
     Route: 041
     Dates: start: 201609

REACTIONS (2)
  - Drug ineffective [Unknown]
  - Antibody test abnormal [Not Recovered/Not Resolved]

NARRATIVE: CASE EVENT DATE: 201707
